FAERS Safety Report 14044847 (Version 1)
Quarter: 2017Q4

REPORT INFORMATION
  Report Type: Spontaneous
  Country: US (occurrence: US)
  Receive Date: 20171005
  Receipt Date: 20171005
  Transmission Date: 20180321
  Serious: No
  Sender: FDA-Public Use
  Company Number: US-INDIVIOR LIMITED-INDV-100588-2017

PATIENT
  Sex: Male

DRUGS (1)
  1. SUBOXONE [Suspect]
     Active Substance: BUPRENORPHINE HYDROCHLORIDE\NALOXONE HYDROCHLORIDE
     Indication: DRUG USE DISORDER
     Dosage: 0.33MG, UNK
     Route: 060

REACTIONS (5)
  - Pain [Unknown]
  - Neuralgia [Unknown]
  - Product preparation error [Unknown]
  - Intentional underdose [Unknown]
  - Discomfort [Unknown]
